FAERS Safety Report 24190105 (Version 4)
Quarter: 2025Q1

REPORT INFORMATION
  Report Type: Report from Study
  Country: US (occurrence: US)
  Receive Date: 20240808
  Receipt Date: 20250210
  Transmission Date: 20250409
  Serious: Yes (Other)
  Sender: OTSUKA
  Company Number: US-OTSUKA-2024_004917

PATIENT
  Age: 53 Year
  Sex: Male
  Weight: 27.09 kg

DRUGS (2)
  1. TOLVAPTAN [Suspect]
     Active Substance: TOLVAPTAN
     Indication: Congenital cystic kidney disease
     Dosage: 45 MG, QD ( IN THE MORNING)
     Route: 065
     Dates: start: 20190422
  2. TOLVAPTAN [Suspect]
     Active Substance: TOLVAPTAN
     Route: 065
     Dates: start: 20190503

REACTIONS (7)
  - Medical procedure [Unknown]
  - Nasopharyngitis [Unknown]
  - Urinary tract infection [Recovered/Resolved]
  - Glomerular filtration rate decreased [Recovered/Resolved]
  - Glomerular filtration rate decreased [Unknown]
  - Fatigue [Unknown]
  - Dehydration [Recovered/Resolved]

NARRATIVE: CASE EVENT DATE: 20240222
